FAERS Safety Report 7366457-1 (Version None)
Quarter: 2011Q1

REPORT INFORMATION
  Report Type: 
  Country: None (occurrence: None)
  Receive Date: 20110311
  Receipt Date: 20110303
  Transmission Date: 20110831
  Serious: Yes (Hospitalization)
  Sender: FDA-Public Use
  Company Number: 028507

PATIENT
  Age: 19 Year
  Sex: Male

DRUGS (1)
  1. VIMPAT [Suspect]
     Indication: PARTIAL SEIZURES

REACTIONS (1)
  - PSYCHOTIC DISORDER [None]
